FAERS Safety Report 23884457 (Version 3)
Quarter: 2024Q3

REPORT INFORMATION
  Report Type: Spontaneous
  Country: AR (occurrence: AR)
  Receive Date: 20240522
  Receipt Date: 20240816
  Transmission Date: 20241017
  Serious: Yes (Life-Threatening, Other)
  Sender: PFIZER
  Company Number: AR-PFIZER INC-202400173369

PATIENT
  Age: 80 Year
  Sex: Male

DRUGS (1)
  1. VYNDAMAX [Suspect]
     Active Substance: TAFAMIDIS
     Indication: Cardiac amyloidosis
     Dosage: 61 MG, DAILY
     Dates: start: 20240424, end: 202406

REACTIONS (7)
  - Cardiac pacemaker replacement [Recovering/Resolving]
  - Diverticulitis [Unknown]
  - Pain [Recovered/Resolved]
  - Diarrhoea [Recovering/Resolving]
  - Bronchitis [Recovering/Resolving]
  - Influenza [Recovering/Resolving]
  - Anal inflammation [Recovering/Resolving]

NARRATIVE: CASE EVENT DATE: 20240501
